FAERS Safety Report 16594377 (Version 1)
Quarter: 2019Q3

REPORT INFORMATION
  Report Type: Other
  Country: US (occurrence: US)
  Receive Date: 20190718
  Receipt Date: 20190718
  Transmission Date: 20191004
  Serious: No
  Sender: FDA-Public Use
  Company Number: US-SWEDISH ORPHAN BIOVITRUM-2019US0067

PATIENT
  Age: 36 Year
  Sex: Female

DRUGS (13)
  1. CHLOROTHALIDONE [Concomitant]
  2. HYDROXIZONE [Concomitant]
  3. ALPRAZOLAM. [Concomitant]
     Active Substance: ALPRAZOLAM
  4. PERCOCET [Concomitant]
     Active Substance: ACETAMINOPHEN\OXYCODONE HYDROCHLORIDE
  5. LYRICA [Concomitant]
     Active Substance: PREGABALIN
  6. BURPROPRION [Concomitant]
  7. KINERET [Suspect]
     Active Substance: ANAKINRA
     Dates: start: 20181204
  8. TOPIRAMATE. [Concomitant]
     Active Substance: TOPIRAMATE
  9. GABAPENTIN. [Concomitant]
     Active Substance: GABAPENTIN
  10. MELOXICAM. [Concomitant]
     Active Substance: MELOXICAM
  11. TIZANIDINE. [Concomitant]
     Active Substance: TIZANIDINE
  12. BOTOX [Concomitant]
     Active Substance: ONABOTULINUMTOXINA
  13. MIRTAZAPINE. [Concomitant]
     Active Substance: MIRTAZAPINE

REACTIONS (3)
  - Injection site urticaria [Recovering/Resolving]
  - Injection site mass [Recovering/Resolving]
  - Injection site erythema [Recovering/Resolving]

NARRATIVE: CASE EVENT DATE: 201812
